FAERS Safety Report 10385460 (Version 1)
Quarter: 2014Q3

REPORT INFORMATION
  Report Type: Spontaneous
  Country: US (occurrence: US)
  Receive Date: 20140814
  Receipt Date: 20140814
  Transmission Date: 20150326
  Serious: Yes (Hospitalization)
  Sender: FDA-Public Use
  Company Number: US-GLAXOSMITHKLINE-A1084062A

PATIENT
  Age: 83 Year
  Sex: Male

DRUGS (16)
  1. HCTZ [Concomitant]
     Active Substance: HYDROCHLOROTHIAZIDE
  2. MONTELUKAST [Concomitant]
     Active Substance: MONTELUKAST SODIUM
  3. ADVAIR HFA [Suspect]
     Active Substance: FLUTICASONE PROPIONATE\SALMETEROL XINAFOATE
     Indication: CHRONIC OBSTRUCTIVE PULMONARY DISEASE
     Dosage: 1PUFF TWICE PER DAY
     Route: 055
  4. VITAMIN B12 [Concomitant]
     Active Substance: CYANOCOBALAMIN
  5. NIFEDICAL XL [Concomitant]
     Active Substance: NIFEDIPINE
  6. VITAMIN C [Concomitant]
     Active Substance: ASCORBIC ACID
  7. MUCINEX [Concomitant]
     Active Substance: GUAIFENESIN
  8. TUDORZA PRESSAIR [Concomitant]
     Active Substance: ACLIDINIUM BROMIDE
  9. LEVOTHYROXIN [Concomitant]
     Active Substance: LEVOTHYROXINE
  10. LISINOPRIL. [Concomitant]
     Active Substance: LISINOPRIL
  11. ANTIBIOTICS [Concomitant]
     Active Substance: UNSPECIFIED INGREDIENT
  12. GLIMEPIRIDE. [Concomitant]
     Active Substance: GLIMEPIRIDE
  13. METFORMIN [Concomitant]
     Active Substance: METFORMIN HYDROCHLORIDE
  14. PRAVASTATIN [Concomitant]
     Active Substance: PRAVASTATIN\PRAVASTATIN SODIUM
  15. ARICEPT [Concomitant]
     Active Substance: DONEPEZIL HYDROCHLORIDE
  16. DAILY MULTIPLE VITAMIN [Concomitant]

REACTIONS (4)
  - Treatment noncompliance [Unknown]
  - Feeling abnormal [Unknown]
  - Pneumonia [Unknown]
  - Blood glucose decreased [Unknown]
